FAERS Safety Report 5470190-0 (Version None)
Quarter: 2007Q3

REPORT INFORMATION
  Report Type: 
  Country: None (occurrence: None)
  Receive Date: 20070924
  Receipt Date: 20070912
  Transmission Date: 20080115
  Serious: Yes (Hospitalization)
  Sender: FDA-Public Use
  Company Number: 236766K07USA

PATIENT
  Age: 41 Year
  Sex: Female
  Weight: 77.1115 kg

DRUGS (11)
  1. REBIF [Suspect]
     Indication: MULTIPLE SCLEROSIS
     Dosage: 44 MCG, 3 IN 1 WEEKS, SUBCUTANEOUS
     Route: 058
     Dates: start: 20070514
  2. HYDROCODONE [Concomitant]
  3. METHYLPHENIDATE HCL [Concomitant]
  4. LEXAPRO [Concomitant]
  5. ADVIL [Concomitant]
  6. STOOL SOFTENER       (DOCUSATE SODIUM) [Concomitant]
  7. VITAMIN D WITH CALCIUM        (CALCIUM WITH VITAMIN D) [Concomitant]
  8. OSTEO-BIOFLEX              (GLUCOSAMINE W/CHONDROITIN) [Concomitant]
  9. FISH OIL [Concomitant]
  10. FLAX OIL                     (LINUM USITATISSIMUM SEED OIL) [Concomitant]
  11. VITAMIN A-Z   (VITAMINS) [Concomitant]

REACTIONS (4)
  - ASTHENIA [None]
  - CONTUSION [None]
  - FALL [None]
  - PAIN IN EXTREMITY [None]
